FAERS Safety Report 18654673 (Version 2)
Quarter: 2020Q4

REPORT INFORMATION
  Report Type: Spontaneous
  Country: FR (occurrence: FR)
  Receive Date: 20201223
  Receipt Date: 20201226
  Transmission Date: 20210114
  Serious: Yes (Other)
  Sender: FDA-Public Use
  Company Number: FR-JNJFOC-20201233166

PATIENT
  Age: 88 Year
  Sex: Male
  Weight: 59.4 kg

DRUGS (4)
  1. CARBAMAZEPINE. [Suspect]
     Active Substance: CARBAMAZEPINE
     Indication: PRODUCT USED FOR UNKNOWN INDICATION
     Dosage: ; IN TOTAL
     Route: 048
     Dates: start: 20201202, end: 20201202
  2. HALDOL [Suspect]
     Active Substance: HALOPERIDOL
     Indication: PRODUCT USED FOR UNKNOWN INDICATION
     Dosage: ; IN TOTAL
     Route: 048
     Dates: start: 20201202, end: 20201202
  3. ZUCLOPENTHIXOL DIHYDROCHLORIDE [Suspect]
     Active Substance: ZUCLOPENTHIXOL HYDROCHLORIDE
     Indication: PRODUCT USED FOR UNKNOWN INDICATION
     Dosage: ; IN TOTAL , DROPS
     Route: 048
     Dates: start: 20201202, end: 20201202
  4. LEPTICUR [Suspect]
     Active Substance: TROPATEPINE HYDROCHLORIDE
     Indication: PRODUCT USED FOR UNKNOWN INDICATION
     Dosage: ; IN TOTAL
     Route: 048
     Dates: start: 20201202, end: 20201202

REACTIONS (2)
  - Sedation [Recovered/Resolved]
  - Wrong patient received product [Recovered/Resolved]

NARRATIVE: CASE EVENT DATE: 20201202
